FAERS Safety Report 14522748 (Version 1)
Quarter: 2018Q1

REPORT INFORMATION
  Report Type: Spontaneous
  Country: ES (occurrence: ES)
  Receive Date: 20180212
  Receipt Date: 20180212
  Transmission Date: 20180509
  Serious: Yes (Other)
  Sender: FDA-Public Use
  Company Number: ES-BAUSCH-BL-2018-004061

PATIENT
  Age: 95 Year
  Sex: Female

DRUGS (1)
  1. IMIQUIMOD. [Suspect]
     Active Substance: IMIQUIMOD
     Indication: BASAL CELL CARCINOMA
     Dosage: ONCE A DAY FOR FIVE DAYS IN A WEEK FOR A TOTAL OF 6 WEEKS
     Route: 061

REACTIONS (2)
  - Disease progression [Recovered/Resolved]
  - Eye ulcer [Recovered/Resolved]
